FAERS Safety Report 8789730 (Version 1)
Quarter: 2012Q4

REPORT INFORMATION
  Report Type: Spontaneous
  Country: US (occurrence: None)
  Receive Date: 20120911
  Receipt Date: 20120911
  Transmission Date: 20130627
  Serious: Yes (Hospitalization, Other)
  Sender: FDA-Public Use
  Company Number: None

PATIENT
  Age: 46 Year
  Sex: Male
  Weight: 180 kg

DRUGS (2)
  1. TRAMADOL [Suspect]
     Indication: PAIN RELIEF
     Route: 048
     Dates: start: 20120901, end: 20120906
  2. TRAMADOL [Suspect]
     Indication: EYE PAIN
     Route: 048
     Dates: start: 20120901, end: 20120906

REACTIONS (1)
  - Suicidal ideation [None]
